FAERS Safety Report 9643265 (Version 1)
Quarter: 2013Q4

REPORT INFORMATION
  Report Type: Spontaneous
  Country: US (occurrence: None)
  Receive Date: 20131022
  Receipt Date: 20131022
  Transmission Date: 20140711
  Serious: Yes (Hospitalization)
  Sender: FDA-Public Use
  Company Number: 2013TP000588

PATIENT
  Age: 60 Year
  Sex: Female

DRUGS (1)
  1. LIDODERM [Suspect]
     Indication: PROCEDURAL PAIN
     Dosage: 1 PATCH; 1X; TOP
     Route: 061

REACTIONS (2)
  - Speech disorder [None]
  - Renal disorder [None]
